FAERS Safety Report 13179878 (Version 1)
Quarter: 2017Q1

REPORT INFORMATION
  Report Type: Spontaneous
  Country: US (occurrence: US)
  Receive Date: 20170202
  Receipt Date: 20170202
  Transmission Date: 20170428
  Serious: No
  Sender: FDA-Public Use
  Company Number: US-TARO-1-17817779

PATIENT
  Sex: Female

DRUGS (1)
  1. CLOMIPRAMINE HCL CAPSULES 50 MG [Suspect]
     Active Substance: CLOMIPRAMINE HYDROCHLORIDE
     Indication: OBSESSIVE-COMPULSIVE DISORDER
     Dosage: UNK, UNK
     Route: 065
     Dates: start: 20090220

REACTIONS (5)
  - Irritability [Unknown]
  - Drug ineffective [Unknown]
  - Salivary gland disorder [Unknown]
  - Insomnia [Unknown]
  - Pyrexia [Unknown]
